FAERS Safety Report 5963547-2 (Version None)
Quarter: 2008Q4

REPORT INFORMATION
  Report Type: 
  Country: None (occurrence: None)
  Receive Date: 20081124
  Receipt Date: 20080313
  Transmission Date: 20090506
  Serious: No
  Sender: FDA-Public Use
  Company Number: US-BAYER-200811113BCC

PATIENT
  Age: 46 Year
  Sex: Female
  Weight: 86 kg

DRUGS (2)
  1. ALEVE [Suspect]
     Indication: ARTHRALGIA
     Dosage: TOTAL DAILY DOSE: 220 MG  UNIT DOSE: 220 MG
     Dates: start: 20080305, end: 20080313
  2. ZANTAC [Concomitant]

REACTIONS (7)
  - DYSPNOEA [None]
  - EPISTAXIS [None]
  - ERUCTATION [None]
  - HEADACHE [None]
  - NAUSEA [None]
  - NERVOUSNESS [None]
  - OEDEMA PERIPHERAL [None]
